FAERS Safety Report 7265577-X (Version None)
Quarter: 2011Q1

REPORT INFORMATION
  Report Type: 
  Country: None (occurrence: None)
  Receive Date: 20110131
  Receipt Date: 20110121
  Transmission Date: 20110831
  Serious: Yes (Other)
  Sender: FDA-Public Use
  Company Number: US-ROCHE-755511

PATIENT
  Age: 32 Year
  Sex: Female
  Weight: 62.1 kg

DRUGS (7)
  1. KLONOPIN [Interacting]
     Indication: BIPOLAR DISORDER
     Route: 065
  2. SEROQUEL [Interacting]
     Indication: BIPOLAR DISORDER
     Route: 065
  3. IBUPROFEN [Concomitant]
  4. CHANTIX [Interacting]
     Dosage: FORM: FILM COATED TABLET
     Route: 048
  5. NICOTINE [Suspect]
     Route: 065
  6. PROZAC [Interacting]
     Indication: BIPOLAR DISORDER
     Route: 065
  7. CHANTIX [Interacting]
     Route: 048
     Dates: end: 20110109

REACTIONS (6)
  - ERYTHEMA [None]
  - HOMICIDAL IDEATION [None]
  - STOMATITIS [None]
  - DRUG INTERACTION [None]
  - PERSONALITY CHANGE [None]
  - ILL-DEFINED DISORDER [None]
